FAERS Safety Report 8972836 (Version 1)
Quarter: 2012Q4

REPORT INFORMATION
  Report Type: 
  Country: US (occurrence: US)
  Receive Date: 20121219
  Receipt Date: 20121219
  Transmission Date: 20130627
  Serious: No
  Sender: FDA-Public Use
  Company Number: US-009507513-1212USA006344

PATIENT
  Sex: Female

DRUGS (5)
  1. EMEND [Suspect]
     Indication: PROPHYLAXIS OF NAUSEA AND VOMITING
     Dosage: 125 mg, day 1
     Route: 048
  2. EMEND [Suspect]
     Dosage: 80 mg, day 2 and 3
     Route: 048
  3. ALOXI [Concomitant]
  4. DECADRON (DEXAMETHASONE) [Concomitant]
  5. ONDANSETRON [Concomitant]

REACTIONS (2)
  - Nausea [Unknown]
  - Constipation [Unknown]
